FAERS Safety Report 24000242 (Version 1)
Quarter: 2024Q2

REPORT INFORMATION
  Report Type: Spontaneous
  Country: NL (occurrence: None)
  Receive Date: 20240621
  Receipt Date: 20240621
  Transmission Date: 20240715
  Serious: Yes (Other)
  Sender: FDA-Public Use
  Company Number: 2024A138852

PATIENT
  Age: 61 Year
  Sex: Male

DRUGS (2)
  1. OSIMERTINIB [Suspect]
     Active Substance: OSIMERTINIB
     Indication: Lung adenocarcinoma
     Route: 048
  2. PALBOCICLIB [Suspect]
     Active Substance: PALBOCICLIB
     Indication: Lung adenocarcinoma

REACTIONS (10)
  - Metastases to lung [Unknown]
  - Toxicity to various agents [Unknown]
  - Interstitial lung disease [Unknown]
  - Metastases to bone [Unknown]
  - Leukopenia [Unknown]
  - Neutropenia [Unknown]
  - Thrombocytopenia [Unknown]
  - Pneumonitis [Unknown]
  - Drug resistance [Unknown]
  - Rash [Unknown]
